FAERS Safety Report 8354917-6 (Version None)
Quarter: 2012Q2

REPORT INFORMATION
  Report Type: 
  Country: None (occurrence: None)
  Receive Date: 20120511
  Receipt Date: 20120420
  Transmission Date: 20120825
  Serious: Yes (Hospitalization)
  Sender: FDA-Public Use
  Company Number: DE-PFIZER INC-2011299379

PATIENT
  Age: 14 Year
  Sex: Male
  Weight: 58 kg

DRUGS (1)
  1. MYCOBUTIN [Suspect]
     Indication: HELICOBACTER GASTRITIS
     Dosage: 150 MG, 2X/DAY
     Route: 048
     Dates: start: 20111024, end: 20111104

REACTIONS (5)
  - THROMBOCYTOPENIA [None]
  - BONE MARROW DISORDER [None]
  - HEADACHE [None]
  - PYREXIA [None]
  - LEUKOPENIA [None]
